FAERS Safety Report 23730136 (Version 1)
Quarter: 2024Q2

REPORT INFORMATION
  Report Type: Spontaneous
  Country: DE (occurrence: DE)
  Receive Date: 20240411
  Receipt Date: 20240411
  Transmission Date: 20240716
  Serious: No
  Sender: FDA-Public Use
  Company Number: DE-ALKEM LABORATORIES LIMITED-DE-ALKEM-2024-05577

PATIENT
  Age: 2 Year
  Sex: Female

DRUGS (10)
  1. EVEROLIMUS [Suspect]
     Active Substance: EVEROLIMUS
     Indication: Tuberous sclerosis complex
     Dosage: 1 MILLIGRAM/SQ. METER (1.7 YEARS
     Route: 065
  2. OXCARBAZEPINE [Suspect]
     Active Substance: OXCARBAZEPINE
     Indication: Tuberous sclerosis complex
     Dosage: UNK
     Route: 065
  3. LAMOTRIGINE [Suspect]
     Active Substance: LAMOTRIGINE
     Indication: Tuberous sclerosis complex
     Dosage: UNK
     Route: 065
  4. LEVETIRACETAM [Suspect]
     Active Substance: LEVETIRACETAM
     Indication: Tuberous sclerosis complex
     Dosage: UNK
     Route: 065
  5. VIGABATRIN [Suspect]
     Active Substance: VIGABATRIN
     Indication: Tuberous sclerosis complex
     Dosage: UNK
     Route: 065
  6. RUFINAMIDE [Suspect]
     Active Substance: RUFINAMIDE
     Indication: Tuberous sclerosis complex
     Dosage: UNK
     Route: 065
  7. TOPIRAMATE [Suspect]
     Active Substance: TOPIRAMATE
     Indication: Tuberous sclerosis complex
     Dosage: UNK
     Route: 065
  8. SULTHIAME [Suspect]
     Active Substance: SULTHIAME
     Indication: Tuberous sclerosis complex
     Dosage: UNK
     Route: 065
  9. VALPROATE [Suspect]
     Active Substance: VALPROIC ACID
     Indication: Tuberous sclerosis complex
     Dosage: UNK
     Route: 065
  10. ZONISAMIDE [Suspect]
     Active Substance: ZONISAMIDE
     Indication: Tuberous sclerosis complex
     Dosage: UNK
     Route: 065

REACTIONS (6)
  - Diarrhoea [Unknown]
  - Infection [Unknown]
  - Adverse event [Unknown]
  - Drug resistance [Unknown]
  - Therapy non-responder [Unknown]
  - Off label use [Unknown]
